FAERS Safety Report 9735812 (Version 3)
Quarter: 2014Q3

REPORT INFORMATION
  Report Type: Spontaneous
  Country: US (occurrence: None)
  Receive Date: 20131204
  Receipt Date: 20140917
  Transmission Date: 20150326
  Serious: No
  Sender: FDA-Public Use
  Company Number: 2015382

PATIENT
  Sex: Male

DRUGS (2)
  1. CORTISONE [Suspect]
     Active Substance: CORTISONE\HYDROCORTISONE
     Indication: ARTHRALGIA
     Dosage: NOT REPORTED, NOT REPORTED, UNKNOWN?
     Dates: start: 20131023
  2. LIDOCAINE HCL [Suspect]
     Active Substance: LIDOCAINE HYDROCHLORIDE
     Indication: ARTHRALGIA
     Dosage: NOT REPORTED, NOT REPORTED, UNKNOWN
     Dates: start: 20131023

REACTIONS (11)
  - Pain in extremity [None]
  - Arthralgia [None]
  - Joint swelling [None]
  - Impaired work ability [None]
  - Pain [None]
  - Poor quality drug administered [None]
  - Product contamination physical [None]
  - Groin pain [None]
  - Genital pain [None]
  - Drug effect decreased [None]
  - Product quality issue [None]

NARRATIVE: CASE EVENT DATE: 20131023
